FAERS Safety Report 5006016-9 (Version None)
Quarter: 2006Q2

REPORT INFORMATION
  Report Type: 
  Country: None (occurrence: None)
  Receive Date: 20060518
  Receipt Date: 20060405
  Transmission Date: 20061013
  Serious: Yes (Other)
  Sender: FDA-Public Use
  Company Number: ES-ABBOTT-06P-144-0330120-01

PATIENT
  Sex: Male
  Weight: 80 kg

DRUGS (11)
  1. HUMIRA [Suspect]
     Indication: RHEUMATOID ARTHRITIS
     Route: 058
     Dates: start: 20050225, end: 20060227
  2. DEFLAZACORT [Concomitant]
     Indication: RHEUMATOID ARTHRITIS
     Route: 048
     Dates: start: 19900101
  3. NIFEDIPINE [Concomitant]
     Indication: HYPERTENSION
     Route: 048
     Dates: start: 19870501
  4. MODURETIC 5-50 [Concomitant]
     Indication: HYPERTENSION
     Route: 048
     Dates: start: 20000120
  5. PARACETAMOL [Concomitant]
     Indication: RHEUMATOID ARTHRITIS
     Route: 048
     Dates: start: 20000514
  6. CELECOXIB [Concomitant]
     Indication: RHEUMATOID ARTHRITIS
     Route: 048
     Dates: start: 20010220
  7. ACETYLSALICYLIC ACID SRT [Concomitant]
     Indication: HYPERTENSION
     Route: 048
     Dates: start: 20000708
  8. CALCEVITA [Concomitant]
     Indication: STEROID THERAPY
     Route: 048
     Dates: start: 19900520
  9. OMEPRAZOLE [Concomitant]
     Indication: PROPHYLAXIS AGAINST GASTROINTESTINAL ULCER
     Route: 048
     Dates: start: 19900520
  10. COMMERCIAL HUMIRA [Concomitant]
     Indication: RHEUMATOID ARTHRITIS
     Dates: start: 20040322
  11. ISONIAZID [Concomitant]
     Indication: ANTIBIOTIC PROPHYLAXIS

REACTIONS (4)
  - LYMPHADENOPATHY MEDIASTINAL [None]
  - POLYMERASE CHAIN REACTION [None]
  - RED BLOOD CELL SEDIMENTATION RATE INCREASED [None]
  - SPUTUM CULTURE POSITIVE [None]
